FAERS Safety Report 12289739 (Version 1)
Quarter: 2016Q2

REPORT INFORMATION
  Report Type: Spontaneous
  Country: US (occurrence: US)
  Receive Date: 20160421
  Receipt Date: 20160421
  Transmission Date: 20160815
  Serious: Yes (Hospitalization, Disabling, Other)
  Sender: FDA-Public Use
  Company Number: US-ENDO PHARMACEUTICALS INC.-2016-000436

PATIENT
  Age: 62 Year
  Sex: Male
  Weight: 99.88 kg

DRUGS (2)
  1. TESTOPEL [Suspect]
     Active Substance: TESTOSTERONE
     Indication: ANDROGEN REPLACEMENT THERAPY
     Route: 058
     Dates: start: 2010, end: 2010
  2. DEPO TESTOSTERONE [Suspect]
     Active Substance: TESTOSTERONE
     Indication: ANDROGEN REPLACEMENT THERAPY
     Route: 065
     Dates: start: 2005

REACTIONS (14)
  - Rhabdomyolysis [Unknown]
  - Emotional disorder [Unknown]
  - Pain [Unknown]
  - Bronchitis [Unknown]
  - Oedema [Unknown]
  - Cardiomyopathy [Unknown]
  - Treatment noncompliance [Unknown]
  - Quality of life decreased [Unknown]
  - Pulmonary embolism [Not Recovered/Not Resolved]
  - Varicose vein [Unknown]
  - Humerus fracture [Unknown]
  - General physical health deterioration [Unknown]
  - Anxiety [Unknown]
  - Deep vein thrombosis [Not Recovered/Not Resolved]

NARRATIVE: CASE EVENT DATE: 201105
